FAERS Safety Report 5407258-0 (Version None)
Quarter: 2007Q3

REPORT INFORMATION
  Report Type: 
  Country: None (occurrence: None)
  Receive Date: 20070807
  Receipt Date: 20070731
  Transmission Date: 20080115
  Serious: Yes (Hospitalization)
  Sender: FDA-Public Use
  Company Number: B0480878A

PATIENT
  Age: 94 Year
  Sex: Female
  Weight: 39 kg

DRUGS (9)
  1. VALTREX [Suspect]
     Indication: HERPES ZOSTER
     Dosage: 1000MG THREE TIMES PER DAY
     Route: 048
     Dates: start: 20070703, end: 20070705
  2. TOWARAT L [Concomitant]
     Route: 048
  3. UNKNOWN [Concomitant]
     Route: 048
  4. TRYPTANOL [Concomitant]
     Route: 048
  5. CHINESE MEDICINE [Concomitant]
     Route: 048
  6. CHINESE MEDICINE [Concomitant]
     Route: 048
  7. GAMOFA [Concomitant]
     Route: 048
  8. ASPARA K [Concomitant]
     Route: 048
  9. BONALON [Concomitant]
     Route: 048

REACTIONS (10)
  - ANOREXIA [None]
  - BLOOD CREATININE INCREASED [None]
  - BLOOD UREA INCREASED [None]
  - NAUSEA [None]
  - OEDEMA [None]
  - OEDEMA PERIPHERAL [None]
  - RENAL DISORDER [None]
  - RENAL FAILURE ACUTE [None]
  - RESTLESSNESS [None]
  - URINE OUTPUT DECREASED [None]
